FAERS Safety Report 10687992 (Version 4)
Quarter: 2015Q2

REPORT INFORMATION
  Report Type: Report from Study
  Country: US (occurrence: US)
  Receive Date: 20150102
  Receipt Date: 20150401
  Transmission Date: 20150821
  Serious: Yes (Death, Other)
  Sender: FDA-Public Use
  Company Number: PHEH2014US025601

PATIENT
  Sex: Female

DRUGS (4)
  1. GILENYA [Suspect]
     Active Substance: FINGOLIMOD HYDROCHLORIDE
     Indication: MULTIPLE SCLEROSIS
     Dosage: 0.5 MG, QD
     Route: 048
     Dates: start: 20110620, end: 2013
  2. AMBIEN [Concomitant]
     Active Substance: ZOLPIDEM TARTRATE
     Indication: SOMNOLENCE
     Route: 048
  3. GILENYA [Suspect]
     Active Substance: FINGOLIMOD HYDROCHLORIDE
     Dosage: 0.5 MG, QD
     Route: 048
     Dates: start: 20141218
  4. LISINOPRIL. [Concomitant]
     Active Substance: LISINOPRIL
     Indication: HYPERTENSION
     Route: 048
     Dates: start: 20141218

REACTIONS (19)
  - Respiratory failure [Fatal]
  - Heart rate decreased [Fatal]
  - Depressed level of consciousness [Unknown]
  - Respiratory arrest [Unknown]
  - Hypotension [Unknown]
  - Photophobia [Unknown]
  - Eye disorder [Unknown]
  - Nasopharyngitis [Unknown]
  - Hypertension [Fatal]
  - Headache [Fatal]
  - Subarachnoid haemorrhage [Fatal]
  - Haemorrhage intracranial [Fatal]
  - Vomiting [Unknown]
  - Neck pain [Unknown]
  - Blood potassium decreased [Unknown]
  - Sinus tachycardia [Unknown]
  - Flushing [Unknown]
  - Corneal reflex decreased [Fatal]
  - Aneurysm ruptured [Unknown]
